FAERS Safety Report 4323486-X (Version None)
Quarter: 2004Q1

REPORT INFORMATION
  Report Type: 
  Country: None (occurrence: None)
  Receive Date: 20040325
  Receipt Date: 20040316
  Transmission Date: 20041129
  Serious: Yes (Death)
  Sender: FDA-Public Use
  Company Number: JP-BRISTOL-MYERS SQUIBB COMPANY-12534855

PATIENT
  Age: 54 Year
  Sex: Female

DRUGS (4)
  1. TAXOL [Suspect]
     Indication: BREAST CANCER
     Route: 042
     Dates: start: 20040302, end: 20040302
  2. DIPHENHYDRAMINE HCL [Concomitant]
  3. RANITIDINE HCL [Concomitant]
  4. DEXAMETHASONE SODIUM PHOSPHATE [Concomitant]

REACTIONS (1)
  - DYSPNOEA [None]
